FAERS Safety Report 5130224-X (Version None)
Quarter: 2006Q4

REPORT INFORMATION
  Report Type: 
  Country: None (occurrence: None)
  Receive Date: 20061019
  Receipt Date: 20060425
  Transmission Date: 20070319
  Serious: Yes (Other)
  Sender: FDA-Public Use
  Company Number: PHBS2006FR06365

PATIENT
  Age: 25 Year
  Sex: Female

DRUGS (2)
  1. CARBAMAZEPINE [Suspect]
     Indication: PARTIAL SEIZURES
     Dosage: 1400 MG/DAY
     Route: 065
  2. PHENOBARBITAL TAB [Suspect]
     Indication: PARTIAL SEIZURES
     Dosage: 150 MG/DAY
     Route: 065

REACTIONS (8)
  - COGNITIVE DISORDER [None]
  - CONDITION AGGRAVATED [None]
  - ELECTROENCEPHALOGRAM ABNORMAL [None]
  - FEELING DRUNK [None]
  - GAIT DISTURBANCE [None]
  - GRAND MAL CONVULSION [None]
  - MYOCLONUS [None]
  - STATUS EPILEPTICUS [None]
